FAERS Safety Report 7512189-6 (Version None)
Quarter: 2011Q2

REPORT INFORMATION
  Report Type: 
  Country: None (occurrence: None)
  Receive Date: 20110531
  Receipt Date: 20110524
  Transmission Date: 20111010
  Serious: Yes (Hospitalization)
  Sender: FDA-Public Use
  Company Number: GB-PFIZER INC-2011112347

PATIENT
  Age: 36 Year
  Sex: Male
  Weight: 97 kg

DRUGS (1)
  1. VARENICLINE TARTRATE [Suspect]
     Dosage: UNK
     Route: 048
     Dates: start: 20110504, end: 20110508

REACTIONS (3)
  - ACUTE PSYCHOSIS [None]
  - INSOMNIA [None]
  - FEELING ABNORMAL [None]
